APPROVED DRUG PRODUCT: CLARITHROMYCIN
Active Ingredient: CLARITHROMYCIN
Strength: 1GM
Dosage Form/Route: TABLET, EXTENDED RELEASE;ORAL
Application: A065210 | Product #001
Applicant: RANBAXY LABORATORIES LTD
Approved: Jan 26, 2005 | RLD: No | RS: No | Type: DISCN